FAERS Safety Report 6740668-8 (Version None)
Quarter: 2010Q2

REPORT INFORMATION
  Report Type: 
  Country: None (occurrence: None)
  Receive Date: 20100525
  Receipt Date: 20100513
  Transmission Date: 20101027
  Serious: Yes (Hospitalization, Other)
  Sender: FDA-Public Use
  Company Number: US-PFIZER INC-2010060735

PATIENT
  Sex: Female
  Weight: 68 kg

DRUGS (4)
  1. REVATIO [Suspect]
     Indication: DYSPNOEA
     Dosage: 20 MG, 3X/DAY
     Route: 048
  2. FUROSEMIDE [Concomitant]
     Indication: DIURETIC THERAPY
     Dosage: 40 MG, 1X/DAY
  3. WARFARIN SODIUM [Concomitant]
     Indication: ANTICOAGULANT THERAPY
     Dosage: 8 MG, 1X/DAY
  4. TRAMADOL [Concomitant]
     Dosage: 50 MG, AS NEEDED

REACTIONS (1)
  - CARDIAC FAILURE [None]
